FAERS Safety Report 5025501-7 (Version None)
Quarter: 2006Q2

REPORT INFORMATION
  Report Type: 
  Country: None (occurrence: None)
  Receive Date: 20060608
  Receipt Date: 20060531
  Transmission Date: 20061013
  Serious: Yes (Other)
  Sender: FDA-Public Use
  Company Number: 200612760BWH

PATIENT
  Age: 62 Year
  Sex: Female
  Weight: 82.5547 kg

DRUGS (7)
  1. NEXAVAR [Suspect]
     Indication: METASTATIC RENAL CELL CARCINOMA
     Dosage: 400 MG, BID, ORAL; SEE IMAGE
     Route: 048
     Dates: start: 20060224, end: 20060501
  2. NEXAVAR [Suspect]
     Indication: METASTATIC RENAL CELL CARCINOMA
     Dosage: 400 MG, BID, ORAL; SEE IMAGE
     Route: 048
     Dates: start: 20060501
  3. NEXIUM [Concomitant]
  4. HYDROCODONE [Concomitant]
  5. OXYCODONE HCL [Concomitant]
  6. NORVASC [Concomitant]
  7. TELMISARTAN [Concomitant]

REACTIONS (7)
  - BACK PAIN [None]
  - DECREASED APPETITE [None]
  - DIFFICULTY IN WALKING [None]
  - NAUSEA [None]
  - OESOPHAGEAL ULCER [None]
  - VOMITING [None]
  - WEIGHT DECREASED [None]
